FAERS Safety Report 19895707 (Version 2)
Quarter: 2021Q4

REPORT INFORMATION
  Report Type: Other
  Country: AU (occurrence: AU)
  Receive Date: 20210929
  Receipt Date: 20211216
  Transmission Date: 20220303
  Serious: Yes (Hospitalization)
  Sender: FDA-Public Use
  Company Number: AU-TOLMAR, INC.-21AU026580

PATIENT
  Age: 86 Year
  Sex: Male

DRUGS (1)
  1. ELIGARD [Suspect]
     Active Substance: LEUPROLIDE ACETATE
     Indication: Prostate cancer
     Dosage: 45 MG, Q 6 MONTH
     Dates: start: 20200405

REACTIONS (9)
  - Fall [Unknown]
  - Joint injury [Unknown]
  - Limb injury [Unknown]
  - Lower respiratory tract infection [Unknown]
  - Cellulitis [Unknown]
  - Dizziness [Unknown]
  - Groin pain [Unknown]
  - Pain in extremity [Unknown]
  - Arthralgia [Unknown]

NARRATIVE: CASE EVENT DATE: 20201101
